FAERS Safety Report 6998701-4 (Version None)
Quarter: 2010Q3

REPORT INFORMATION
  Report Type: 
  Country: None (occurrence: None)
  Receive Date: 20100920
  Receipt Date: 20100204
  Transmission Date: 20110219
  Serious: No
  Sender: FDA-Public Use
  Company Number: US-ASTRAZENECA-2009SE20155

PATIENT
  Age: 40 Year
  Sex: Female
  Weight: 124.3 kg

DRUGS (5)
  1. SEROQUEL [Suspect]
     Indication: DEPRESSION
     Dosage: VARIOUS DOSAGE INCLUDE 1200 MG
     Route: 048
     Dates: start: 20020101
  2. SEROQUEL [Suspect]
     Indication: BIPOLAR DISORDER
     Dosage: VARIOUS DOSAGE INCLUDE 1200 MG
     Route: 048
     Dates: start: 20020101
  3. DEPAKOTE ER [Concomitant]
     Indication: BIPOLAR DISORDER
  4. CYMBALTA [Concomitant]
     Indication: DEPRESSION
  5. EFFEXOR [Concomitant]
     Indication: DEPRESSION

REACTIONS (3)
  - HYPERTENSION [None]
  - OBESITY [None]
  - TYPE 2 DIABETES MELLITUS [None]
